FAERS Safety Report 17656091 (Version 1)
Quarter: 2020Q2

REPORT INFORMATION
  Report Type: Spontaneous
  Country: US (occurrence: US)
  Receive Date: 20200410
  Receipt Date: 20200410
  Transmission Date: 20200713
  Serious: No
  Sender: FDA-Public Use
  Company Number: US-ASTRAZENECA-2020SE46661

PATIENT
  Sex: Female
  Weight: 3.7 kg

DRUGS (2)
  1. SYNAGIS [Suspect]
     Active Substance: PALIVIZUMAB
     Indication: SMALL FOR DATES BABY
     Route: 030
  2. POLY-VI-SOL IRON [Concomitant]

REACTIONS (4)
  - Feeling abnormal [Unknown]
  - Lip ulceration [Unknown]
  - Skin warm [Unknown]
  - Irritability [Unknown]
